FAERS Safety Report 11186723 (Version 2)
Quarter: 2015Q2

REPORT INFORMATION
  Report Type: Spontaneous
  Country: FI (occurrence: FI)
  Receive Date: 20150613
  Receipt Date: 20150626
  Transmission Date: 20150821
  Serious: Yes (Disabling)
  Sender: FDA-Public Use
  Company Number: FI-TEVA-569075ISR

PATIENT
  Age: 66 Year
  Sex: Female

DRUGS (6)
  1. LETROZOLE RATIOPHARM 2,5 MG [Suspect]
     Active Substance: LETROZOLE
     Indication: DRUG THERAPY
     Route: 048
     Dates: start: 20150216, end: 201503
  2. METOHEXAL 47,5 MG [Concomitant]
     Route: 048
  3. CARTEXAN 400 MG [Concomitant]
     Indication: OSTEOARTHRITIS
     Dosage: 400 MILLIGRAM DAILY;
     Route: 048
  4. KALCIPOS-D 500 MG/400IU [Concomitant]
     Route: 048
  5. CANDESARTAN/HYDROCHLOROTIAZIDE ORION 8MG/12,5 MG [Concomitant]
     Indication: BLOOD PRESSURE
     Dosage: 0.5-1 TABLET DAILY
     Route: 048
  6. ASA-RATIOPHARM [Suspect]
     Active Substance: ASPIRIN
     Indication: CEREBRAL INFARCTION
     Dosage: 50 MILLIGRAM DAILY;
     Route: 048

REACTIONS (9)
  - Arthralgia [Unknown]
  - Mucosal dryness [Unknown]
  - Intervertebral disc compression [Not Recovered/Not Resolved]
  - Nail disorder [Unknown]
  - Nerve compression [Not Recovered/Not Resolved]
  - Dry skin [Not Recovered/Not Resolved]
  - Blood pressure increased [Unknown]
  - Feeling of body temperature change [Not Recovered/Not Resolved]
  - Pain in extremity [Unknown]

NARRATIVE: CASE EVENT DATE: 201503
